FAERS Safety Report 7184585-0 (Version None)
Quarter: 2010Q4

REPORT INFORMATION
  Report Type: 
  Country: None (occurrence: None)
  Receive Date: 20101222
  Receipt Date: 20101214
  Transmission Date: 20110411
  Serious: Yes (Other)
  Sender: FDA-Public Use
  Company Number: US-ELI_LILLY_AND_COMPANY-US201012000141

PATIENT
  Weight: 94.331 kg

DRUGS (1)
  1. GEMZAR [Suspect]
     Dosage: 2000 MG, 2/M
     Route: 042
     Dates: start: 20100930, end: 20101021

REACTIONS (1)
  - BLINDNESS [None]
